FAERS Safety Report 25626111 (Version 1)
Quarter: 2025Q3

REPORT INFORMATION
  Report Type: Spontaneous
  Country: CN (occurrence: CN)
  Receive Date: 20250731
  Receipt Date: 20250731
  Transmission Date: 20251021
  Serious: Yes (Other)
  Sender: ACCORD
  Company Number: CN-Accord-496729

PATIENT
  Age: 45 Year
  Sex: Female

DRUGS (20)
  1. CISPLATIN [Suspect]
     Active Substance: CISPLATIN
     Indication: Lung carcinoma cell type unspecified stage IV
     Dosage: 75 MG/M2, DAY 1; FOR 6 CYCLES
     Dates: start: 2021, end: 2021
  2. ETOPOSIDE [Suspect]
     Active Substance: ETOPOSIDE
     Indication: Lung carcinoma cell type unspecified stage IV
     Dosage: 100 MG/M2, DAYS 1-3; FOR 6 CYCLES
     Dates: start: 2021, end: 2021
  3. ENDOSTATIN [Suspect]
     Active Substance: ENDOSTATIN
     Indication: Lung carcinoma cell type unspecified stage IV
     Route: 042
     Dates: start: 2021, end: 20220624
  4. CAMRELIZUMAB [Suspect]
     Active Substance: CAMRELIZUMAB
     Indication: Lung carcinoma cell type unspecified stage IV
     Dates: start: 2021, end: 20220624
  5. CAMRELIZUMAB [Suspect]
     Active Substance: CAMRELIZUMAB
     Indication: Neuroendocrine carcinoma
     Dates: start: 2021, end: 20220624
  6. CAMRELIZUMAB [Suspect]
     Active Substance: CAMRELIZUMAB
     Indication: Metastases to bone
     Dates: start: 2021, end: 20220624
  7. CAMRELIZUMAB [Suspect]
     Active Substance: CAMRELIZUMAB
     Indication: Metastases to lymph nodes
     Dates: start: 2021, end: 20220624
  8. ETOPOSIDE [Suspect]
     Active Substance: ETOPOSIDE
     Indication: Neuroendocrine carcinoma
     Dosage: 100 MG/M2, DAYS 1-3; FOR 6 CYCLES
     Dates: start: 2021, end: 2021
  9. CISPLATIN [Suspect]
     Active Substance: CISPLATIN
     Indication: Neuroendocrine carcinoma
     Dosage: 75 MG/M2, DAY 1; FOR 6 CYCLES
     Dates: start: 2021, end: 2021
  10. ENDOSTATIN [Suspect]
     Active Substance: ENDOSTATIN
     Indication: Neuroendocrine carcinoma
     Route: 042
     Dates: start: 2021, end: 20220624
  11. CISPLATIN [Suspect]
     Active Substance: CISPLATIN
     Indication: Metastases to bone
     Dosage: 75 MG/M2, DAY 1; FOR 6 CYCLES
     Dates: start: 2021, end: 2021
  12. ENDOSTATIN [Suspect]
     Active Substance: ENDOSTATIN
     Indication: Metastases to bone
     Route: 042
     Dates: start: 2021, end: 20220624
  13. ETOPOSIDE [Suspect]
     Active Substance: ETOPOSIDE
     Indication: Metastases to bone
     Dosage: 100 MG/M2, DAYS 1-3; FOR 6 CYCLES
     Dates: start: 2021, end: 2021
  14. CAMRELIZUMAB [Suspect]
     Active Substance: CAMRELIZUMAB
     Indication: Metastases to liver
     Dates: start: 2021, end: 20220624
  15. ENDOSTATIN [Suspect]
     Active Substance: ENDOSTATIN
     Indication: Metastases to liver
     Route: 042
     Dates: start: 2021, end: 20220624
  16. CISPLATIN [Suspect]
     Active Substance: CISPLATIN
     Indication: Metastases to liver
     Dosage: 75 MG/M2, DAY 1; FOR 6 CYCLES
     Dates: start: 2021, end: 2021
  17. ETOPOSIDE [Suspect]
     Active Substance: ETOPOSIDE
     Indication: Metastases to liver
     Dosage: 100 MG/M2, DAYS 1-3; FOR 6 CYCLES
     Dates: start: 2021, end: 2021
  18. ENDOSTATIN [Suspect]
     Active Substance: ENDOSTATIN
     Indication: Metastases to lymph nodes
     Route: 042
     Dates: start: 2021, end: 20220624
  19. CISPLATIN [Suspect]
     Active Substance: CISPLATIN
     Indication: Metastases to lymph nodes
     Dosage: 75 MG/M2, DAY 1; FOR 6 CYCLES
     Dates: start: 2021, end: 2021
  20. ETOPOSIDE [Suspect]
     Active Substance: ETOPOSIDE
     Indication: Metastases to lymph nodes
     Dosage: 100 MG/M2, DAYS 1-3; FOR 6 CYCLES
     Dates: start: 2021, end: 2021

REACTIONS (3)
  - Myelosuppression [Unknown]
  - Gastrointestinal toxicity [Unknown]
  - Therapy partial responder [Unknown]

NARRATIVE: CASE EVENT DATE: 20210101
